FAERS Safety Report 15338277 (Version 3)
Quarter: 2020Q2

REPORT INFORMATION
  Report Type: Not Available
  Country: CA (occurrence: CA)
  Receive Date: 20180831
  Receipt Date: 20200413
  Transmission Date: 20200713
  Serious: Yes (Other)
  Sender: FDA-Public Use
  Company Number: CA-CELGENEUS-CAN-20180101785

PATIENT
  Sex: Female

DRUGS (9)
  1. OTEZLA [Suspect]
     Active Substance: APREMILAST
     Dosage: 1 TABLET
     Route: 048
  2. METHOTREXATE. [Concomitant]
     Active Substance: METHOTREXATE
     Indication: PRODUCT USED FOR UNKNOWN INDICATION
     Route: 065
  3. AMEVIVE [Concomitant]
     Active Substance: ALEFACEPT
     Indication: PRODUCT USED FOR UNKNOWN INDICATION
     Route: 030
  4. OTEZLA [Suspect]
     Active Substance: APREMILAST
     Indication: PRODUCT USED FOR UNKNOWN INDICATION
     Dosage: 2 TABLET
     Route: 048
  5. COSENTYX [Suspect]
     Active Substance: SECUKINUMAB
     Dosage: 300 MILLIGRAM
     Route: 058
     Dates: start: 20160316
  6. BETAMETHASONE DIPROPIONATE/CALCIPOTRIOL [Concomitant]
     Active Substance: BETAMETHASONE DIPROPIONATE\CALCIPOTRIENE
     Indication: PRODUCT USED FOR UNKNOWN INDICATION
     Route: 065
  7. STELARA [Concomitant]
     Active Substance: USTEKINUMAB
     Indication: PRODUCT USED FOR UNKNOWN INDICATION
     Route: 058
  8. CORTODERM [Concomitant]
     Indication: PRODUCT USED FOR UNKNOWN INDICATION
     Dosage: 1 PERCENT
     Route: 065
  9. COSENTYX [Suspect]
     Active Substance: SECUKINUMAB
     Indication: PSORIASIS
     Dosage: 300 MILLIGRAM
     Route: 058
     Dates: start: 20160224

REACTIONS (18)
  - Dandruff [Unknown]
  - Pollakiuria [Unknown]
  - Varicose vein [Unknown]
  - Migraine [Not Recovered/Not Resolved]
  - Skin exfoliation [Unknown]
  - Arthralgia [Unknown]
  - Influenza like illness [Not Recovered/Not Resolved]
  - Injury associated with device [Recovered/Resolved]
  - Pain of skin [Unknown]
  - Rash erythematous [Unknown]
  - Drug ineffective [Unknown]
  - Dry skin [Unknown]
  - Psoriasis [Unknown]
  - Pruritus [Unknown]
  - Muscle strain [Unknown]
  - Onychoclasis [Unknown]
  - Pain [Unknown]
  - Erythema [Unknown]
